FAERS Safety Report 14355640 (Version 1)
Quarter: 2018Q1

REPORT INFORMATION
  Report Type: Spontaneous
  Country: US (occurrence: US)
  Receive Date: 20180104
  Receipt Date: 20180104
  Transmission Date: 20180509
  Serious: No
  Sender: FDA-Public Use
  Company Number: None

PATIENT
  Age: 62 Year
  Sex: Female
  Weight: 56.25 kg

DRUGS (17)
  1. VALACYCLOVIR [Concomitant]
     Active Substance: VALACYCLOVIR HYDROCHLORIDE
  2. PHENYLEPHRINE HCL [Concomitant]
     Active Substance: PHENYLEPHRINE HYDROCHLORIDE
  3. CENTRUM SILVER FOR WOMEN [Concomitant]
     Active Substance: MINERALS\VITAMINS
  4. ALBUTEROL USED WITH NEBULIZER [Concomitant]
  5. NASACORT [Concomitant]
     Active Substance: TRIAMCINOLONE ACETONIDE
  6. AMLODIPINE [Suspect]
     Active Substance: AMLODIPINE BESYLATE
     Indication: HYPERTENSION
     Dosage: ?          QUANTITY:1 TABLET(S);?
     Route: 048
     Dates: start: 20170703, end: 20171108
  7. CLONAZEPAM. [Concomitant]
     Active Substance: CLONAZEPAM
  8. GUAIFENESIN. [Concomitant]
     Active Substance: GUAIFENESIN
  9. SINGULAIR [Concomitant]
     Active Substance: MONTELUKAST SODIUM
  10. VENTOLIN [Concomitant]
     Active Substance: ALBUTEROL SULFATE
  11. CALCIUM [Concomitant]
     Active Substance: CALCIUM
  12. AZELASTINE. [Concomitant]
     Active Substance: AZELASTINE HYDROCHLORIDE
  13. VITAMIN C [Concomitant]
     Active Substance: ASCORBIC ACID
  14. ZYRTEC [Concomitant]
     Active Substance: CETIRIZINE HYDROCHLORIDE
  15. VITAMIN D [Concomitant]
     Active Substance: CHOLECALCIFEROL
  16. VITAMIN B COMPLEX [Concomitant]
     Active Substance: CYANOCOBALAMIN\DEXPANTHENOL\NIACINAMIDE\PYRIDOXINE HYDROCHLORIDE\RIBOFLAVIN 5^-PHOSPHATE SODIUM\THIAMINE HYDROCHLORIDE\VITAMIN B COMPLEX
  17. AREDS [Concomitant]
     Active Substance: MINERALS\VITAMINS

REACTIONS (6)
  - Fatigue [None]
  - Vomiting [None]
  - Malaise [None]
  - Nausea [None]
  - Somnolence [None]
  - Therapy cessation [None]

NARRATIVE: CASE EVENT DATE: 20171108
